FAERS Safety Report 12624965 (Version 3)
Quarter: 2016Q4

REPORT INFORMATION
  Report Type: Spontaneous
  Country: JP (occurrence: JP)
  Receive Date: 20160805
  Receipt Date: 20161107
  Transmission Date: 20170207
  Serious: Yes (Death, Hospitalization)
  Sender: FDA-Public Use
  Company Number: JP-ELI_LILLY_AND_COMPANY-JP201608001808

PATIENT
  Age: 68 Year
  Sex: Male
  Weight: 64 kg

DRUGS (13)
  1. ALIMTA [Suspect]
     Active Substance: PEMETREXED DISODIUM
     Indication: LUNG ADENOCARCINOMA RECURRENT
     Dosage: 800 MG, UNK
     Route: 042
     Dates: start: 20160309, end: 20160309
  2. CARBOPLATIN. [Concomitant]
     Active Substance: CARBOPLATIN
     Indication: LUNG ADENOCARCINOMA RECURRENT
     Dosage: 340 MG, UNK
     Route: 042
     Dates: start: 20160309, end: 20160309
  3. PANVITAN                           /05664401/ [Concomitant]
     Indication: PROPHYLAXIS
     Dosage: UNK
     Route: 048
     Dates: start: 20160229, end: 20160721
  4. AMLODIPINE                         /00972402/ [Concomitant]
     Active Substance: AMLODIPINE BESYLATE
     Indication: AORTIC ANEURYSM
     Dosage: UNK
     Route: 048
     Dates: end: 20160721
  5. PARIET [Concomitant]
     Active Substance: RABEPRAZOLE SODIUM
     Indication: PROPHYLAXIS
     Dosage: UNK
     Route: 048
     Dates: end: 20160721
  6. ALIMTA [Suspect]
     Active Substance: PEMETREXED DISODIUM
     Dosage: 650 MG, UNK
     Dates: start: 20160405, end: 20160705
  7. METHYCOBAL [Concomitant]
     Active Substance: METHYLCOBALAMIN
     Indication: PROPHYLAXIS
     Dosage: UNK
     Route: 030
     Dates: start: 20160229, end: 20160719
  8. CARBOPLATIN. [Concomitant]
     Active Substance: CARBOPLATIN
     Dosage: 280 MG, UNK
     Route: 042
     Dates: start: 20160405, end: 20160614
  9. URSO [Concomitant]
     Active Substance: URSODIOL
     Indication: CHRONIC HEPATITIS
     Dosage: UNK
     Route: 048
     Dates: end: 20160721
  10. GLYCYRON                           /01029201/ [Concomitant]
     Indication: CHRONIC HEPATITIS
     Dosage: UNK
     Route: 048
     Dates: end: 20160721
  11. ULTIBRO [Concomitant]
     Active Substance: GLYCOPYRRONIUM\INDACATEROL
     Indication: EMPHYSEMA
     Dosage: UNK
     Route: 055
     Dates: end: 20160721
  12. BAYASPIRIN [Concomitant]
     Active Substance: ASPIRIN
     Indication: ANGINA PECTORIS
     Dosage: UNK
     Route: 048
     Dates: end: 20160721
  13. GENINAX [Concomitant]
     Active Substance: GARENOXACIN MESYLATE
     Dosage: UNK
     Dates: start: 20160713

REACTIONS (2)
  - Malignant neoplasm progression [Fatal]
  - Lung disorder [Fatal]

NARRATIVE: CASE EVENT DATE: 20160716
